FAERS Safety Report 9224575 (Version 1)
Quarter: 2013Q2

REPORT INFORMATION
  Report Type: Spontaneous
  Country: BR (occurrence: None)
  Receive Date: 20130409
  Receipt Date: 20130409
  Transmission Date: 20140414
  Serious: Yes (Death, Other)
  Sender: FDA-Public Use
  Company Number: 2013P1004203

PATIENT
  Age: 6 Day
  Sex: Female
  Weight: 2.73 kg

DRUGS (5)
  1. PYRIMETHAMINE [Suspect]
     Indication: TOXOPLASMOSIS
     Route: 064
  2. SPIRAMYCIN [Suspect]
     Indication: TOXOPLASMOSIS
     Route: 064
  3. SULFADIAZINE [Suspect]
     Indication: TOXOPLASMOSIS
     Route: 064
  4. FOLINIC ACID [Concomitant]
  5. BETAMETHASONE [Concomitant]

REACTIONS (31)
  - Caesarean section [None]
  - Premature baby [None]
  - Apnoea neonatal [None]
  - Hypotonia neonatal [None]
  - Neonatal tachycardia [None]
  - Therapeutic response decreased [None]
  - Apgar score low [None]
  - Neonatal respiratory distress syndrome [None]
  - Maternal drugs affecting foetus [None]
  - Grunting [None]
  - Cyanosis neonatal [None]
  - Neonatal hypotension [None]
  - Poor peripheral circulation [None]
  - Blood glucose increased [None]
  - Patent ductus arteriosus [None]
  - Atrial septal defect [None]
  - Shock [None]
  - Peritoneal dialysis [None]
  - Renal failure acute [None]
  - Bronchopneumonia [None]
  - Lung abscess [None]
  - Pulmonary haemorrhage [None]
  - Adrenal cortex necrosis [None]
  - Fungal infection [None]
  - Kidney infection [None]
  - Meningitis fungal [None]
  - Hepatic infection fungal [None]
  - Cardiomyopathy [None]
  - Gastrointestinal fungal infection [None]
  - Systemic candida [None]
  - Congenital infection [None]
